FAERS Safety Report 12296992 (Version 1)
Quarter: 2016Q2

REPORT INFORMATION
  Report Type: Spontaneous
  Country: US (occurrence: US)
  Receive Date: 20160422
  Receipt Date: 20160422
  Transmission Date: 20160815
  Serious: No
  Sender: FDA-Public Use
  Company Number: US-SA-2016SA009200

PATIENT
  Age: 70 Year
  Sex: Male

DRUGS (2)
  1. AFREZZA [Suspect]
     Active Substance: INSULIN HUMAN
     Indication: DIABETES MELLITUS
     Dosage: DOSE: 35-50 UNITS DEPENDING ON HIS MEALS
     Route: 055
     Dates: start: 201601
  2. AFREZZA [Suspect]
     Active Substance: INSULIN HUMAN
     Indication: DIABETES MELLITUS
     Route: 065
     Dates: end: 201510

REACTIONS (3)
  - Incorrect product storage [None]
  - Cough [Recovering/Resolving]
  - Product label confusion [None]
